FAERS Safety Report 12686079 (Version 1)
Quarter: 2016Q3

REPORT INFORMATION
  Report Type: Spontaneous
  Country: US (occurrence: US)
  Receive Date: 20160825
  Receipt Date: 20160825
  Transmission Date: 20161109
  Serious: No
  Sender: FDA-Public Use
  Company Number: US-DSJP-DSU-2016-100052

PATIENT
  Age: 94 Year
  Sex: Female

DRUGS (2)
  1. ISRADIPINE. [Suspect]
     Active Substance: ISRADIPINE
     Indication: BLOOD PRESSURE ABNORMAL
     Dosage: UNK, QAM
     Dates: end: 201512
  2. TRIBENZOR [Suspect]
     Active Substance: AMLODIPINE BESYLATE\HYDROCHLOROTHIAZIDE\OLMESARTAN MEDOXOMIL
     Indication: BLOOD PRESSURE ABNORMAL
     Dosage: 40/5/25MG, QD
     Dates: start: 201512

REACTIONS (4)
  - Ocular discomfort [Unknown]
  - Dizziness [Unknown]
  - Unevaluable event [Unknown]
  - Feeling abnormal [Unknown]

NARRATIVE: CASE EVENT DATE: 201512
